FAERS Safety Report 8294368-6 (Version None)
Quarter: 2012Q2

REPORT INFORMATION
  Report Type: 
  Country: None (occurrence: None)
  Receive Date: 20120418
  Receipt Date: 20120411
  Transmission Date: 20120825
  Serious: Yes (Life-Threatening, Hospitalization, Disabling, Other)
  Sender: FDA-Public Use
  Company Number: US-PFIZER INC-2011021565

PATIENT
  Sex: Male

DRUGS (22)
  1. BLINDED NO SUBJECT DRUG [Suspect]
     Dosage: 0.58 MG, 1X/DAY
     Route: 026
     Dates: start: 20101110, end: 20101110
  2. PLACEBO [Suspect]
     Dosage: 0.58 MG, 1X/DAY
     Route: 026
     Dates: start: 20101110, end: 20101110
  3. PLACEBO [Suspect]
     Dosage: 0.58 MG, 1X/DAY
     Route: 026
     Dates: start: 20101229, end: 20101229
  4. ZOLPIDEM [Concomitant]
     Indication: INSOMNIA
     Dosage: 10 MG, UNK
     Dates: start: 20010101, end: 20110116
  5. LANSOPRAZOLE [Concomitant]
     Indication: GASTROOESOPHAGEAL REFLUX DISEASE
     Dosage: 60 MG, DAILY
     Dates: start: 20060103
  6. BLINDED COLLAGENASE CLOSTRIDIUM HISTOLYTICUM [Suspect]
     Indication: PEYRONIE'S DISEASE
     Dosage: 0.58 MG, 1X/DAY
     Route: 026
     Dates: start: 20101108, end: 20101108
  7. CETIRIZINE [Concomitant]
     Indication: HYPERSENSITIVITY
     Dosage: 10 MG, DAILY
     Dates: start: 20060103
  8. BLINDED COLLAGENASE CLOSTRIDIUM HISTOLYTICUM [Suspect]
     Dosage: 0.58 MG, 1X/DAY
     Route: 026
     Dates: start: 20101110, end: 20101110
  9. BLINDED COLLAGENASE CLOSTRIDIUM HISTOLYTICUM [Suspect]
     Dosage: 0.58 MG, 1X/DAY
     Route: 026
     Dates: start: 20101228, end: 20101228
  10. GALENIC /FLUTICASONE/SALMETEROL/ [Concomitant]
     Indication: ASTHMA
     Dosage: 500MCG/50MCG, DAILY
     Dates: start: 20020112
  11. PLACEBO [Suspect]
     Indication: PEYRONIE'S DISEASE
     Dosage: 0.58 MG, 1X/DAY
     Route: 026
     Dates: start: 20101108, end: 20101108
  12. ATORVASTATIN [Concomitant]
     Indication: HYPERLIPIDAEMIA
     Dosage: 20 MG, DAILY
     Dates: start: 20021202
  13. GUAIFENESIN [Concomitant]
     Indication: HYPERSENSITIVITY
     Dosage: 600 MG, DAILY
     Dates: start: 20080103
  14. BLINDED NO SUBJECT DRUG [Suspect]
     Dosage: 0.58 MG, 1X/DAY
     Route: 026
     Dates: start: 20101228, end: 20101228
  15. PLACEBO [Suspect]
     Dosage: 0.58 MG, 1X/DAY
     Route: 026
     Dates: start: 20101228, end: 20101228
  16. BLINDED COLLAGENASE CLOSTRIDIUM HISTOLYTICUM [Suspect]
     Dosage: 0.58 MG, 1X/DAY
     Route: 026
     Dates: start: 20101229, end: 20101229
  17. MONTELUKAST [Concomitant]
     Indication: ASTHMA
     Dosage: 10 MG, DAILY
     Dates: start: 20010101
  18. BLINDED NO SUBJECT DRUG [Suspect]
     Indication: PEYRONIE'S DISEASE
     Dosage: 0.58 MG, 1X/DAY
     Route: 026
     Dates: start: 20101108, end: 20101108
  19. BLINDED NO SUBJECT DRUG [Suspect]
     Dosage: 0.58 MG, 1X/DAY
     Route: 026
     Dates: start: 20101229, end: 20101229
  20. XANAX [Suspect]
     Indication: ANXIETY
     Dosage: 1.5 MG, UNK
     Dates: start: 20010101, end: 20110116
  21. LANSOPRAZOLE [Concomitant]
     Dosage: 30 MG, DAILY
  22. MOMETASONE [Concomitant]
     Indication: HYPERSENSITIVITY
     Dosage: 200 UG, 1X/DAY
     Dates: start: 20010101

REACTIONS (3)
  - GRAND MAL CONVULSION [None]
  - DRUG WITHDRAWAL SYNDROME [None]
  - SPINAL COMPRESSION FRACTURE [None]
